FAERS Safety Report 8308239-X (Version None)
Quarter: 2012Q2

REPORT INFORMATION
  Report Type: 
  Country: None (occurrence: None)
  Receive Date: 20120424
  Receipt Date: 20120410
  Transmission Date: 20120825
  Serious: Yes (Hospitalization, Other)
  Sender: FDA-Public Use
  Company Number: US-WATSON-2012-04128

PATIENT
  Age: 57 Year
  Sex: Male

DRUGS (1)
  1. BACLOFEN [Suspect]
     Indication: CENTRAL PAIN SYNDROME
     Dosage: 40 MG, DAILY (10 MG 4X/DAY)
     Route: 048

REACTIONS (5)
  - RESPIRATORY FAILURE [None]
  - NEUROTOXICITY [None]
  - DRUG LEVEL ABOVE THERAPEUTIC [None]
  - LOSS OF CONSCIOUSNESS [None]
  - PSYCHOTIC DISORDER [None]
